FAERS Safety Report 23369055 (Version 1)
Quarter: 2024Q1

REPORT INFORMATION
  Report Type: Spontaneous
  Country: US (occurrence: US)
  Receive Date: 20240105
  Receipt Date: 20240105
  Transmission Date: 20240409
  Serious: No
  Sender: FDA-Public Use
  Company Number: US-002147023-NVSC2024US001647

PATIENT
  Sex: Female

DRUGS (1)
  1. COSENTYX [Suspect]
     Active Substance: SECUKINUMAB
     Indication: Product used for unknown indication
     Dosage: 150 MG, QW
     Route: 065

REACTIONS (6)
  - Upper respiratory tract infection [Unknown]
  - Pyrexia [Unknown]
  - Myalgia [Unknown]
  - Hyperhidrosis [Unknown]
  - Cough [Unknown]
  - Dry skin [Unknown]
